FAERS Safety Report 6715955-X (Version None)
Quarter: 2010Q2

REPORT INFORMATION
  Report Type: 
  Country: None (occurrence: None)
  Receive Date: 20100506
  Receipt Date: 20100506
  Transmission Date: 20101027
  Serious: Yes (Other)
  Sender: FDA-Public Use
  Company Number: None

PATIENT
  Sex: Female
  Weight: 99.7913 kg

DRUGS (1)
  1. AMLODIPINE BESYLATE [Suspect]
     Indication: HYPERTENSION
     Dosage: ONE A DAY

REACTIONS (3)
  - ABDOMINAL PAIN [None]
  - ANGINA PECTORIS [None]
  - PRODUCT SUBSTITUTION ISSUE [None]
